FAERS Safety Report 17375101 (Version 2)
Quarter: 2021Q3

REPORT INFORMATION
  Report Type: Spontaneous
  Country: US (occurrence: US)
  Receive Date: 20200206
  Receipt Date: 20210714
  Transmission Date: 20211014
  Serious: Yes (Other)
  Sender: FDA-Public Use
  Company Number: US-TEVA-2020-US-1181195

PATIENT
  Age: 53 Year
  Sex: Male

DRUGS (5)
  1. VALSARTAN MYLAN [Suspect]
     Active Substance: VALSARTAN
     Indication: HYPERTENSION
     Dosage: DOSAGE: 80 MG
     Route: 065
     Dates: start: 201511, end: 201512
  2. VALSARTAN MYLAN [Suspect]
     Active Substance: VALSARTAN
     Dosage: DOSAGE: 160 MG
     Route: 065
     Dates: start: 201609, end: 201801
  3. VALSARTAN SANDOZ [Suspect]
     Active Substance: VALSARTAN
     Indication: HYPERTENSION
     Dosage: DOSAGE: 160 MG
     Route: 065
     Dates: start: 201512, end: 201601
  4. VALSARTAN SANDOZ [Suspect]
     Active Substance: VALSARTAN
     Dosage: DOSAGE: 160 MG
     Route: 065
     Dates: start: 201601, end: 201609
  5. DILTIAZEM HYDROCHLORIDE. [Concomitant]
     Active Substance: DILTIAZEM HYDROCHLORIDE
     Dosage: DOSAGE: 180 MG, DAILY
     Route: 048

REACTIONS (2)
  - Gastric cancer [Unknown]
  - Colon cancer stage III [Recovered/Resolved]
